FAERS Safety Report 5276695-X (Version None)
Quarter: 2007Q1

REPORT INFORMATION
  Report Type: 
  Country: None (occurrence: None)
  Receive Date: 20070327
  Receipt Date: 20070315
  Transmission Date: 20070707
  Serious: Yes (Other)
  Sender: FDA-Public Use
  Company Number: US-BAYER-200710815BCC

PATIENT
  Age: 32 Year
  Sex: Female
  Weight: 73 kg

DRUGS (8)
  1. PHILLIPS LIQUID GELS [Suspect]
     Indication: CONSTIPATION
     Dosage: UNIT DOSE: 100 MG
     Route: 048
  2. EFFEXOR [Concomitant]
  3. NEPHRO-VITE [Concomitant]
  4. MECLIZINE [Concomitant]
  5. VYTORIN [Concomitant]
  6. LISINOPRIL [Concomitant]
  7. RENAGEL [Concomitant]
  8. ZEMPLAR [Concomitant]

REACTIONS (2)
  - BLOOD MAGNESIUM INCREASED [None]
  - BLOOD POTASSIUM INCREASED [None]
